FAERS Safety Report 7424260-8 (Version None)
Quarter: 2011Q2

REPORT INFORMATION
  Report Type: 
  Country: None (occurrence: None)
  Receive Date: 20110419
  Receipt Date: 20110411
  Transmission Date: 20111010
  Serious: Yes (Hospitalization)
  Sender: FDA-Public Use
  Company Number: US-BRISTOL-MYERS SQUIBB COMPANY-15667652

PATIENT
  Age: 69 Year
  Sex: Male

DRUGS (15)
  1. ACYCLOVIR [Concomitant]
     Dosage: 1 TAB=800MG
     Route: 048
  2. PAROXETINE [Concomitant]
     Dosage: 1 TAB=10MG
     Route: 048
  3. SIMVASTATIN [Concomitant]
     Dosage: 1 TAB=40MG QHS
     Route: 048
  4. MITOXANTRONE HYDROCHLORIDE [Suspect]
  5. OMEPRAZOLE [Concomitant]
     Dosage: 1 CAP=20MG EMPTY STOMACH
     Route: 048
  6. DAPSONE [Concomitant]
     Dosage: 2 TABS=50MG
     Route: 048
  7. SODIUM CHLORIDE [Concomitant]
     Dosage: DOSE:1000ML
     Route: 042
  8. ETOPOSIDE [Suspect]
  9. CYTARABINE [Suspect]
  10. CEFTAZIDIME [Concomitant]
     Dosage: IVPB
     Route: 042
  11. VANCOMYCIN [Concomitant]
     Dosage: IVPB
     Route: 042
  12. MULTIVITAMIN WITH MINERALS [Concomitant]
     Dosage: 1 DF=1 TAB NO IRON TAB
     Route: 048
  13. MDX-1338 [Suspect]
     Indication: ACUTE MYELOID LEUKAEMIA
     Route: 042
     Dates: start: 20110329
  14. FLUCONAZOLE [Concomitant]
     Dosage: 1 TAB=200MG
     Route: 048
  15. URSODIOL [Concomitant]
     Dosage: 1 CAP (DF) =300MG
     Route: 048

REACTIONS (4)
  - NAUSEA [None]
  - FEBRILE NEUTROPENIA [None]
  - VOMITING [None]
  - HYPOPHAGIA [None]
